FAERS Safety Report 20112644 (Version 4)
Quarter: 2022Q4

REPORT INFORMATION
  Report Type: Spontaneous
  Country: DE (occurrence: DE)
  Receive Date: 20211125
  Receipt Date: 20221026
  Transmission Date: 20230112
  Serious: Yes (Hospitalization, Other)
  Sender: FDA-Public Use
  Company Number: DE-002147023-NVSC2021DE262532

PATIENT

DRUGS (2)
  1. RUXOLITINIB [Suspect]
     Active Substance: RUXOLITINIB
     Indication: Polycythaemia vera
     Dosage: UNK, BID (5-0-10) (STRENGTH: 15 MG)
     Route: 065
     Dates: start: 202105, end: 202201
  2. RUXOLITINIB [Suspect]
     Active Substance: RUXOLITINIB
     Dosage: 5 MG, BID (STRENGTH: 5 MG)
     Route: 065
     Dates: start: 2022

REACTIONS (18)
  - Cardiovascular disorder [Not Recovered/Not Resolved]
  - Fall [Not Recovered/Not Resolved]
  - Nausea [Not Recovered/Not Resolved]
  - Fatigue [Not Recovered/Not Resolved]
  - Blood pressure abnormal [Unknown]
  - Constipation [Unknown]
  - Mucosal dryness [Unknown]
  - Asthenia [Unknown]
  - Haemoglobin decreased [Unknown]
  - Oral herpes [Unknown]
  - Liver function test increased [Unknown]
  - Product administration error [Unknown]
  - Decreased appetite [Unknown]
  - Dizziness [Unknown]
  - Sjogren^s syndrome [Unknown]
  - Platelet count increased [Not Recovered/Not Resolved]
  - Skin cancer [Unknown]
  - Impaired healing [Unknown]

NARRATIVE: CASE EVENT DATE: 20210101
